FAERS Safety Report 6370056-8 (Version None)
Quarter: 2009Q3

REPORT INFORMATION
  Report Type: 
  Country: None (occurrence: None)
  Receive Date: 20090923
  Receipt Date: 20070702
  Transmission Date: 20100115
  Serious: No
  Sender: FDA-Public Use
  Company Number: US-ASTRAZENECA-2006UW22204

PATIENT
  Age: 743 Month
  Sex: Female
  Weight: 97.3 kg

DRUGS (21)
  1. SEROQUEL [Suspect]
     Indication: SCHIZOPHRENIA
     Route: 048
     Dates: start: 20031120, end: 20060101
  2. SEROQUEL [Suspect]
     Indication: DEPRESSION
     Route: 048
     Dates: start: 20031120, end: 20060101
  3. PROTONIX [Concomitant]
  4. ZOLOFT [Concomitant]
  5. METOCLOPRAMIDE [Concomitant]
  6. LISINOPRIL [Concomitant]
  7. LIPITOR [Concomitant]
  8. DETROL LA [Concomitant]
  9. MIRTAZAPINE [Concomitant]
  10. LORAZEPAM [Concomitant]
  11. AVAPRO [Concomitant]
  12. CRESTOR [Concomitant]
  13. AVANDAMET [Concomitant]
  14. ALBUTEROL [Concomitant]
  15. MIRALAX [Concomitant]
  16. ZELNORM [Concomitant]
  17. GUAIFEN [Concomitant]
  18. HYDROCODONE [Concomitant]
  19. VYTORIN [Concomitant]
  20. CILOSTAZOL [Concomitant]
  21. METFORMIN HCL [Concomitant]

REACTIONS (4)
  - BONE DISORDER [None]
  - DIABETES MELLITUS [None]
  - INTERMITTENT CLAUDICATION [None]
  - PERIPHERAL VASCULAR DISORDER [None]
